FAERS Safety Report 7435726-9 (Version None)
Quarter: 2011Q2

REPORT INFORMATION
  Report Type: 
  Country: None (occurrence: None)
  Receive Date: 20110425
  Receipt Date: 20110414
  Transmission Date: 20111010
  Serious: Yes (Hospitalization)
  Sender: FDA-Public Use
  Company Number: DE-ELI_LILLY_AND_COMPANY-DE201104004408

PATIENT
  Age: 69 Year
  Sex: Male

DRUGS (5)
  1. CORTISONE [Concomitant]
     Dosage: 6 MG, QD
  2. CORTISONE [Concomitant]
     Dosage: 32 MG, QD
     Dates: start: 20030101
  3. URBASON                            /00049601/ [Concomitant]
     Indication: MUSCULOSKELETAL PAIN
  4. FORTEO [Suspect]
     Indication: OSTEOPOROSIS
     Dosage: UNK
     Route: 058
     Dates: start: 20100705, end: 20110301
  5. CALCILAC [Concomitant]

REACTIONS (13)
  - HEADACHE [None]
  - HYPERHIDROSIS [None]
  - HOSPITALISATION [None]
  - RESPIRATORY DISTRESS [None]
  - DEVICE DISLOCATION [None]
  - MUSCLE SPASMS [None]
  - HOT FLUSH [None]
  - DIABETES MELLITUS [None]
  - BACK PAIN [None]
  - RENAL CYST [None]
  - PALPITATIONS [None]
  - HEART RATE INCREASED [None]
  - ERYTHEMA [None]
